FAERS Safety Report 17561589 (Version 1)
Quarter: 2020Q1

REPORT INFORMATION
  Report Type: Spontaneous
  Country: US (occurrence: US)
  Receive Date: 20200312
  Receipt Date: 20200312
  Transmission Date: 20200409
  Serious: Yes (Hospitalization)
  Sender: FDA-Public Use
  Company Number: None

PATIENT
  Sex: Male

DRUGS (1)
  1. CAPECITABINE 500MG TAB [Suspect]
     Active Substance: CAPECITABINE
     Indication: COLON CANCER
     Dosage: ?          OTHER DOSE:3 TAB-4 TAB;OTHER FREQUENCY:QAM - QPM;OTHER ROUTE:PO 2WKS ON 1WK OFF?
     Dates: start: 20200117

REACTIONS (5)
  - Dizziness [None]
  - Therapy cessation [None]
  - Dry skin [None]
  - Nausea [None]
  - Ketoacidosis [None]
